FAERS Safety Report 11069952 (Version 5)
Quarter: 2016Q2

REPORT INFORMATION
  Report Type: Spontaneous
  Country: JP (occurrence: JP)
  Receive Date: 20150427
  Receipt Date: 20160624
  Transmission Date: 20160815
  Serious: Yes (Hospitalization, Other)
  Sender: FDA-Public Use
  Company Number: JP-ROCHE-1568953

PATIENT
  Age: 65 Year
  Sex: Male
  Weight: 59 kg

DRUGS (13)
  1. NITOROL R [Concomitant]
     Active Substance: ISOSORBIDE DINITRATE
     Route: 048
  2. NEXIUM [Concomitant]
     Active Substance: ESOMEPRAZOLE MAGNESIUM
     Route: 048
     Dates: start: 20140806
  3. PLAVIX [Concomitant]
     Active Substance: CLOPIDOGREL BISULFATE
     Route: 048
  4. ZETIA [Concomitant]
     Active Substance: EZETIMIBE
     Route: 048
  5. MAGMITT [Concomitant]
     Active Substance: MAGNESIUM OXIDE
     Route: 048
  6. LUPRAC [Concomitant]
     Active Substance: TORSEMIDE
     Route: 048
  7. ACTEMRA [Suspect]
     Active Substance: TOCILIZUMAB
     Indication: STILL^S DISEASE ADULT ONSET
     Route: 042
     Dates: start: 20140827
  8. BACTRAMIN [Concomitant]
     Active Substance: SULFAMETHOXAZOLE\TRIMETHOPRIM
     Indication: PROPHYLAXIS
     Route: 048
     Dates: start: 20140821
  9. PREDNISOLONE. [Concomitant]
     Active Substance: PREDNISOLONE
     Dosage: THE FRACTIONATION DOSE FREQUENCY IS UNCERTAIN. DOSE INTERVAL UNCERTAINTY
     Route: 065
     Dates: start: 201409
  10. BEZATOL SR [Concomitant]
     Active Substance: BEZAFIBRATE
     Route: 048
  11. REBAMIPIDE [Suspect]
     Active Substance: REBAMIPIDE
     Indication: PRODUCT USED FOR UNKNOWN INDICATION
     Route: 048
  12. BAYASPIRIN [Concomitant]
     Active Substance: ASPIRIN
     Route: 048
  13. PREDNISOLONE. [Concomitant]
     Active Substance: PREDNISOLONE
     Indication: STILL^S DISEASE ADULT ONSET
     Dosage: THE FRACTIONATION DOSE FREQUENCY IS UNCERTAIN. DOSE INTERVAL UNCERTAINTY
     Route: 065
     Dates: start: 20140824

REACTIONS (5)
  - Serum ferritin increased [Recovered/Resolved]
  - Off label use [Unknown]
  - Histiocytosis haematophagic [Recovered/Resolved]
  - Pancytopenia [Unknown]
  - Disseminated intravascular coagulation [Recovered/Resolved]

NARRATIVE: CASE EVENT DATE: 20140901
